FAERS Safety Report 5673957-9 (Version None)
Quarter: 2008Q1

REPORT INFORMATION
  Report Type: 
  Country: None (occurrence: None)
  Receive Date: 20080319
  Receipt Date: 20080319
  Transmission Date: 20080703
  Serious: No
  Sender: FDA-Public Use
  Company Number: None

PATIENT
  Age: 63 Year
  Sex: Male
  Weight: 66.2252 kg

DRUGS (8)
  1. ALIMTA [Suspect]
     Indication: NEOPLASM MALIGNANT
     Dosage: 500 MG/M2  IV
     Route: 042
     Dates: end: 20071219
  2. ERBITUX [Suspect]
     Dosage: 250 MG/M2  IV
     Route: 042
     Dates: end: 20071219
  3. RT [Suspect]
     Dates: end: 20071227
  4. AVAPRO [Concomitant]
  5. PROSCAR [Concomitant]
  6. VITAMIN B [Concomitant]
  7. IBUPROFEN [Concomitant]
  8. OXYCODONE HCL [Concomitant]

REACTIONS (2)
  - PNEUMONIA [None]
  - RESPIRATORY FAILURE [None]
